FAERS Safety Report 17203042 (Version 1)
Quarter: 2019Q4

REPORT INFORMATION
  Report Type: Spontaneous
  Country: CA (occurrence: CA)
  Receive Date: 20191226
  Receipt Date: 20191226
  Transmission Date: 20200122
  Serious: Yes (Hospitalization)
  Sender: FDA-Public Use
  Company Number: CA-TEVA-2019-CA-1156460

PATIENT
  Age: 47 Year
  Sex: Female
  Weight: 83 kg

DRUGS (1)
  1. PREGABALIN. [Suspect]
     Active Substance: PREGABALIN
     Indication: NEURALGIA
     Dosage: 450 MILLIGRAM DAILY;
     Route: 065

REACTIONS (2)
  - Haematemesis [Recovered/Resolved]
  - Vomiting [Recovered/Resolved]
